FAERS Safety Report 9226009 (Version 1)
Quarter: 2013Q2

REPORT INFORMATION
  Report Type: Spontaneous
  Country: FR (occurrence: FR)
  Receive Date: 20130411
  Receipt Date: 20130411
  Transmission Date: 20140414
  Serious: Yes (Congenital Anomaly)
  Sender: FDA-Public Use
  Company Number: FR-JNJFOC-20130317613

PATIENT
  Age: 0 Year
  Sex: Male
  Weight: 2.96 kg

DRUGS (2)
  1. RISPERDAL [Suspect]
     Indication: FOETAL EXPOSURE DURING PREGNANCY
     Route: 064
     Dates: start: 20090917
  2. RISPERDAL [Suspect]
     Indication: FOETAL EXPOSURE DURING PREGNANCY
     Route: 064
     Dates: end: 200907

REACTIONS (2)
  - Anomaly of external ear congenital [Recovered/Resolved]
  - Talipes [Recovered/Resolved]
